FAERS Safety Report 8501331-6 (Version None)
Quarter: 2012Q3

REPORT INFORMATION
  Report Type: 
  Country: None (occurrence: None)
  Receive Date: 20120710
  Receipt Date: 20120627
  Transmission Date: 20120928
  Serious: No
  Sender: FDA-Public Use
  Company Number: US-ASTRAZENECA-2012SE43552

PATIENT
  Age: 66 Year
  Sex: Female
  Weight: 74.8 kg

DRUGS (8)
  1. BUDESONIDE [Suspect]
     Indication: COELIAC DISEASE
     Route: 048
  2. LANSOPRAZOLE [Concomitant]
     Indication: GASTROOESOPHAGEAL REFLUX DISEASE
  3. LEVOTHYROXINE SODIUM [Concomitant]
  4. AMITRIPTYLINE HCL [Suspect]
     Route: 065
  5. CLOTRIMAZOLE [Concomitant]
  6. LOSARTAN POTASSIUM [Concomitant]
  7. CRANBERRY CAPLET [Concomitant]
  8. ALPHAGAN [Concomitant]
     Indication: GLAUCOMA

REACTIONS (4)
  - ABDOMINAL DISCOMFORT [None]
  - ABDOMINAL DISTENSION [None]
  - OFF LABEL USE [None]
  - INTENTIONAL DRUG MISUSE [None]
